FAERS Safety Report 6066433-5 (Version None)
Quarter: 2009Q1

REPORT INFORMATION
  Report Type: 
  Country: None (occurrence: None)
  Receive Date: 20090203
  Receipt Date: 20090121
  Transmission Date: 20090719
  Serious: Yes (Other)
  Sender: FDA-Public Use
  Company Number: DSU-2009-00164

PATIENT
  Age: 65 Year
  Sex: Male
  Weight: 81.6475 kg

DRUGS (4)
  1. WELCHOL [Suspect]
     Indication: HYPERLIPIDAEMIA
     Dosage: 3750 MG (1875 MG,BID), PER ORAL
     Route: 048
     Dates: start: 20081001
  2. FLOMAX [Concomitant]
  3. AMLODIPINE AND BENAZEPRIL [Concomitant]
  4. PLAVIX [Concomitant]

REACTIONS (2)
  - GALLBLADDER DISORDER [None]
  - GALLBLADDER PAIN [None]
